FAERS Safety Report 7909124-5 (Version None)
Quarter: 2011Q4

REPORT INFORMATION
  Report Type: 
  Country: None (occurrence: None)
  Receive Date: 20111111
  Receipt Date: 20101004
  Transmission Date: 20120403
  Serious: Yes (Disabling)
  Sender: FDA-Public Use
  Company Number: US-GLAXOSMITHKLINE-A0884783A

PATIENT
  Age: 51 Year
  Sex: Female
  Weight: 95.5 kg

DRUGS (10)
  1. VENTOLIN [Concomitant]
  2. MAXZIDE [Concomitant]
  3. JANUVIA [Concomitant]
  4. COREG CR [Concomitant]
  5. ADVAIR DISKUS 100/50 [Concomitant]
  6. SINGULAIR [Concomitant]
  7. VAGINAL CREAM [Concomitant]
  8. DIGOXIN [Concomitant]
  9. SYNTHROID [Concomitant]
  10. CARVEDILOL [Suspect]
     Indication: CARDIOMYOPATHY
     Dosage: 50MG TWICE PER DAY
     Route: 048
     Dates: start: 20061101

REACTIONS (1)
  - SOMNOLENCE [None]
